FAERS Safety Report 9398836 (Version 1)
Quarter: 2013Q3

REPORT INFORMATION
  Report Type: Spontaneous
  Country: US (occurrence: US)
  Receive Date: 20130712
  Receipt Date: 20130712
  Transmission Date: 20140515
  Serious: No
  Sender: FDA-Public Use
  Company Number: US-TEVA-418597USA

PATIENT
  Age: 44 Year
  Sex: Female
  Weight: 65.83 kg

DRUGS (5)
  1. NUVIGIL [Suspect]
     Indication: NARCOLEPSY
     Route: 048
     Dates: start: 20130703, end: 20130710
  2. FLONASE [Concomitant]
     Indication: MULTIPLE ALLERGIES
  3. ZYRTEC [Concomitant]
     Indication: MULTIPLE ALLERGIES
  4. ADVAIR [Concomitant]
     Dosage: QD
     Route: 055
  5. XYREM [Concomitant]
     Indication: NARCOLEPSY
     Dosage: BID
     Route: 048

REACTIONS (2)
  - Rash [Not Recovered/Not Resolved]
  - Pruritus [Unknown]
